FAERS Safety Report 16254243 (Version 8)
Quarter: 2020Q4

REPORT INFORMATION
  Report Type: Report from Study
  Country: US (occurrence: US)
  Receive Date: 20190430
  Receipt Date: 20201223
  Transmission Date: 20210113
  Serious: Yes (Other)
  Sender: FDA-Public Use
  Company Number: PHEH2019US017791

PATIENT
  Age: 12 Year
  Sex: Male
  Weight: 81.64 kg

DRUGS (8)
  1. ILARIS [Suspect]
     Active Substance: CANAKINUMAB
     Indication: JUVENILE IDIOPATHIC ARTHRITIS
     Dosage: 150 MG, QW
     Route: 058
     Dates: start: 20190804
  2. METHOTREXATE. [Suspect]
     Active Substance: METHOTREXATE
     Indication: ARTHRITIS
  3. METHOTREXATE. [Suspect]
     Active Substance: METHOTREXATE
     Indication: STILL^S DISEASE
     Dosage: UNK, QW
     Route: 065
  4. ILARIS [Suspect]
     Active Substance: CANAKINUMAB
     Indication: STILL^S DISEASE
     Dosage: UNK UNK, QMO
     Route: 058
     Dates: start: 20160802
  5. INDOMETHACIN. [Suspect]
     Active Substance: INDOMETHACIN
     Indication: RASH
  6. METHOTREXATE. [Suspect]
     Active Substance: METHOTREXATE
     Indication: PAIN
  7. ILARIS [Suspect]
     Active Substance: CANAKINUMAB
     Dosage: 160 MG, Q2W
     Route: 058
     Dates: start: 2018
  8. INDOMETHACIN. [Suspect]
     Active Substance: INDOMETHACIN
     Indication: STILL^S DISEASE
     Dosage: UNK
     Route: 065
     Dates: start: 201702

REACTIONS (13)
  - Condition aggravated [Not Recovered/Not Resolved]
  - Inappropriate schedule of product administration [Unknown]
  - Arthritis [Unknown]
  - Rash [Recovering/Resolving]
  - Cough [Unknown]
  - Oropharyngeal pain [Recovered/Resolved]
  - Still^s disease [Not Recovered/Not Resolved]
  - Scar [Unknown]
  - Weight decreased [Not Recovered/Not Resolved]
  - Pain [Recovering/Resolving]
  - Fatigue [Unknown]
  - Nausea [Unknown]
  - Headache [Recovered/Resolved]

NARRATIVE: CASE EVENT DATE: 201702
